FAERS Safety Report 7369481-8 (Version None)
Quarter: 2011Q1

REPORT INFORMATION
  Report Type: 
  Country: None (occurrence: None)
  Receive Date: 20110323
  Receipt Date: 20110311
  Transmission Date: 20110831
  Serious: Yes (Death, Hospitalization, Other)
  Sender: FDA-Public Use
  Company Number: US-CELGENEUS-163-21880-10112311

PATIENT
  Sex: Female

DRUGS (2)
  1. REVLIMID [Suspect]
     Indication: MULTIPLE MYELOMA
     Dosage: 10 MILLIGRAM
     Route: 048
     Dates: start: 20101104, end: 20101101
  2. REVLIMID [Suspect]
     Dosage: 20 MILLIGRAM
     Route: 048
     Dates: start: 20101101

REACTIONS (6)
  - RENAL FAILURE [None]
  - NEOPLASM MALIGNANT [None]
  - MULTIPLE MYELOMA [None]
  - GENERAL PHYSICAL HEALTH DETERIORATION [None]
  - DRUG INEFFECTIVE [None]
  - DELUSIONAL DISORDER, UNSPECIFIED TYPE [None]
